FAERS Safety Report 19903684 (Version 4)
Quarter: 2022Q3

REPORT INFORMATION
  Report Type: Spontaneous
  Country: US (occurrence: US)
  Receive Date: 20211001
  Receipt Date: 20220812
  Transmission Date: 20221026
  Serious: Yes (Other)
  Sender: FDA-Public Use
  Company Number: US-JNJFOC-20210946781

PATIENT
  Age: 27 Year
  Sex: Female

DRUGS (3)
  1. CHILDRENS BENADRYL ALLERGY [Suspect]
     Active Substance: DIPHENHYDRAMINE HYDROCHLORIDE
     Indication: Sleep disorder therapy
     Dosage: 20 ML ONCE A DAY?A SIP ONCE
     Route: 048
     Dates: start: 20210920, end: 20210920
  2. CHILDRENS BENADRYL ALLERGY [Suspect]
     Active Substance: DIPHENHYDRAMINE HYDROCHLORIDE
     Indication: Food allergy
     Dosage: 20 ML ONCE A DAY
     Route: 048
     Dates: start: 20210929
  3. CHILDRENS BENADRYL ALLERGY [Suspect]
     Active Substance: DIPHENHYDRAMINE HYDROCHLORIDE
     Indication: Anaphylactic shock

REACTIONS (6)
  - Foreign body in throat [Recovered/Resolved]
  - Product contamination physical [Unknown]
  - Product use in unapproved indication [Recovered/Resolved]
  - Oropharyngeal pain [Recovered/Resolved]
  - Oesophageal pain [Recovered/Resolved]
  - Product administered to patient of inappropriate age [Unknown]

NARRATIVE: CASE EVENT DATE: 20210920
